FAERS Safety Report 8497612-5 (Version None)
Quarter: 2012Q3

REPORT INFORMATION
  Report Type: 
  Country: None (occurrence: None)
  Receive Date: 20120709
  Receipt Date: 20120604
  Transmission Date: 20120928
  Serious: No
  Sender: FDA-Public Use
  Company Number: US-AMGEN-USASP2012033162

PATIENT
  Age: 38 Year
  Sex: Female

DRUGS (3)
  1. METHOTREXATE [Concomitant]
     Dosage: 25 MG, WEEKLY
  2. ENBREL [Suspect]
     Indication: RHEUMATOID ARTHRITIS
     Dosage: 50 MG, WEEKLY
     Dates: start: 20120417, end: 20120523
  3. FOLIC ACID [Concomitant]
     Dosage: 1 MG, UNK

REACTIONS (3)
  - LOCAL REACTION [None]
  - INJECTION SITE REACTION [None]
  - HYPERSENSITIVITY [None]
